FAERS Safety Report 8344651-0 (Version None)
Quarter: 2012Q2

REPORT INFORMATION
  Report Type: 
  Country: None (occurrence: None)
  Receive Date: 20120508
  Receipt Date: 20120503
  Transmission Date: 20120825
  Serious: Yes (Death, Hospitalization, Other)
  Sender: FDA-Public Use
  Company Number: US-JNJFOC-20120504537

PATIENT
  Age: 45 Year
  Sex: Female

DRUGS (2)
  1. PAIN MEDICATION (NOS) [Suspect]
     Indication: PRODUCT USED FOR UNKNOWN INDICATION
     Route: 065
  2. FENTANYL-100 [Suspect]
     Indication: PAIN
     Route: 062
     Dates: end: 20100101

REACTIONS (4)
  - FALL [None]
  - COMA [None]
  - DEATH [None]
  - DRUG INEFFECTIVE [None]
